FAERS Safety Report 16474765 (Version 1)
Quarter: 2019Q2

REPORT INFORMATION
  Report Type: Report from Study
  Country: IL (occurrence: IL)
  Receive Date: 20190625
  Receipt Date: 20190625
  Transmission Date: 20190711
  Serious: Yes (Hospitalization)
  Sender: FDA-Public Use
  Company Number: IL-ACTELION-A-CH2019-192296

PATIENT
  Age: 73 Year
  Sex: Female

DRUGS (13)
  1. JANUET [Concomitant]
     Active Substance: METFORMIN HYDROCHLORIDE\SITAGLIPTIN PHOSPHATE
  2. LANTUS [Concomitant]
     Active Substance: INSULIN GLARGINE
  3. UPTRAVI [Suspect]
     Active Substance: SELEXIPAG
     Indication: PULMONARY ARTERIAL HYPERTENSION
     Dosage: 200 MCG, BID
     Route: 048
     Dates: start: 20190616, end: 20190621
  4. VASODIP [Concomitant]
     Active Substance: LERCANIDIPINE HYDROCHLORIDE
  5. SIMVACOR [Concomitant]
     Active Substance: SIMVASTATIN
  6. LOSARTAN POTASSIUM AND HYDROCHLOROTHIAZIDE [Concomitant]
     Active Substance: HYDROCHLOROTHIAZIDE\LOSARTAN POTASSIUM
  7. DIULO [Concomitant]
     Active Substance: METOLAZONE
  8. SILDENAFIL CITRATE. [Concomitant]
     Active Substance: SILDENAFIL CITRATE
  9. ELIQUIS [Concomitant]
     Active Substance: APIXABAN
  10. FUSID [Concomitant]
  11. METOPROLOL. [Concomitant]
     Active Substance: METOPROLOL
  12. SPIRONOLACTONE. [Concomitant]
     Active Substance: SPIRONOLACTONE
  13. ALLORIL [Concomitant]

REACTIONS (6)
  - Vomiting [Unknown]
  - Asthenia [Unknown]
  - Nausea [Unknown]
  - Headache [Unknown]
  - Gastroenteritis clostridial [Unknown]
  - Diarrhoea [Unknown]

NARRATIVE: CASE EVENT DATE: 20190617
